FAERS Safety Report 10042926 (Version 2)
Quarter: 2014Q1

REPORT INFORMATION
  Report Type: Spontaneous
  Country: CH (occurrence: CH)
  Receive Date: 20140328
  Receipt Date: 20140328
  Transmission Date: 20141002
  Serious: Yes (Disabling)
  Sender: FDA-Public Use
  Company Number: CH-ROCHE-1352096

PATIENT
  Sex: Female
  Weight: 51 kg

DRUGS (3)
  1. AVASTIN [Suspect]
     Indication: OVARIAN CANCER
     Route: 042
     Dates: start: 20120201, end: 20130107
  2. CARBOPLATINUM [Concomitant]
     Indication: OVARIAN CANCER
  3. TAXOL [Concomitant]
     Indication: OVARIAN CANCER

REACTIONS (3)
  - Scleroderma [Not Recovered/Not Resolved]
  - Arthralgia [Recovered/Resolved]
  - Antinuclear antibody increased [Unknown]
